FAERS Safety Report 7270170-9 (Version None)
Quarter: 2010Q4

REPORT INFORMATION
  Report Type: 
  Country: None (occurrence: None)
  Receive Date: 20101130
  Receipt Date: 20100219
  Transmission Date: 20110411
  Serious: Yes (Hospitalization)
  Sender: FDA-Public Use
  Company Number: 2009-197020-NL

PATIENT
  Age: 49 Year
  Sex: Female
  Weight: 108.8633 kg

DRUGS (7)
  1. NUVARING [Suspect]
     Indication: CONTRACEPTION
     Dates: start: 20021028, end: 20080605
  2. NUVARING [Suspect]
     Indication: MIGRAINE
     Dates: start: 20021028, end: 20080605
  3. POTASSIUM IODIDE [Suspect]
     Indication: ERYTHEMA NODOSUM
     Dosage: PO
     Route: 048
  4. MAXALT [Concomitant]
  5. MIDRIN [Concomitant]
  6. IBUPROFEN [Concomitant]
  7. ZOLOFT [Concomitant]

REACTIONS (4)
  - DERMATITIS ACNEIFORM [None]
  - EPICONDYLITIS [None]
  - ERYTHEMA NODOSUM [None]
  - PULMONARY EMBOLISM [None]
